FAERS Safety Report 21842058 (Version 1)
Quarter: 2023Q1

REPORT INFORMATION
  Report Type: Spontaneous
  Country: PL (occurrence: PL)
  Receive Date: 20230110
  Receipt Date: 20230110
  Transmission Date: 20230418
  Serious: Yes (Hospitalization)
  Sender: FDA-Public Use
  Company Number: None

PATIENT
  Age: 58 Year
  Sex: Female
  Weight: 70 kg

DRUGS (6)
  1. CARBOPLATIN [Suspect]
     Active Substance: CARBOPLATIN
     Indication: Malignant respiratory tract neoplasm
     Dosage: 400
     Dates: start: 20210105, end: 20210126
  2. KETOPROFEN [Concomitant]
     Active Substance: KETOPROFEN
     Indication: Malignant respiratory tract neoplasm
     Dosage: 2X100MG
     Dates: start: 20210105
  3. TRAMADOL HYDROCHLORIDE [Concomitant]
     Active Substance: TRAMADOL HYDROCHLORIDE
     Indication: Malignant respiratory tract neoplasm
     Dosage: 3X75MG
     Dates: start: 20210105
  4. ETOPOSIDE [Concomitant]
     Active Substance: ETOPOSIDE
     Indication: Malignant respiratory tract neoplasm
     Dates: start: 20210105, end: 20210107
  5. DEXAMETHASONE [Concomitant]
     Active Substance: DEXAMETHASONE
     Indication: Malignant respiratory tract neoplasm
     Dosage: 2X4MG
     Dates: start: 20210105, end: 20210107
  6. MORPHINE [Concomitant]
     Active Substance: MORPHINE
     Indication: Malignant respiratory tract neoplasm
     Dosage: 3X20MG
     Dates: start: 20210105

REACTIONS (2)
  - Asthenia [Recovered/Resolved]
  - Dizziness [Recovered/Resolved]

NARRATIVE: CASE EVENT DATE: 20210125
